FAERS Safety Report 24898863 (Version 1)
Quarter: 2025Q1

REPORT INFORMATION
  Report Type: Spontaneous
  Country: RS (occurrence: RS)
  Receive Date: 20250129
  Receipt Date: 20250129
  Transmission Date: 20250409
  Serious: Yes (Other)
  Sender: ROCHE
  Company Number: RS-ROCHE-10000186638

PATIENT
  Age: 59 Year
  Sex: Male

DRUGS (5)
  1. ZELBORAF [Suspect]
     Active Substance: VEMURAFENIB
     Indication: Malignant melanoma
     Route: 065
     Dates: start: 2018
  2. ZELBORAF [Suspect]
     Active Substance: VEMURAFENIB
     Route: 065
  3. COTELLIC [Concomitant]
     Active Substance: COBIMETINIB FUMARATE
  4. LIDOCAINE [Concomitant]
     Active Substance: LIDOCAINE
  5. EPINEPHRINE [Concomitant]
     Active Substance: EPINEPHRINE

REACTIONS (1)
  - Gingival hypertrophy [Recovering/Resolving]
